FAERS Safety Report 9786174 (Version 5)
Quarter: 2014Q2

REPORT INFORMATION
  Report Type: Spontaneous
  Country: JP (occurrence: None)
  Receive Date: 20131224
  Receipt Date: 20140616
  Transmission Date: 20141212
  Serious: Yes (Death)
  Sender: FDA-Public Use
  Company Number: SYM-2013-14279

PATIENT
  Age: 63 Year
  Sex: Male
  Weight: 58 kg

DRUGS (8)
  1. CHOREAZINE [Suspect]
     Indication: HUNTINGTON^S DISEASE
     Dosage: 12.5 MG, 1 IN 1 D, ORAL
     Route: 048
     Dates: start: 20130722, end: 20130920
  2. ZYPREXA (OLANZAPINE) (OLANZAPINE) [Concomitant]
  3. DEPAKENE-R (VALPROATE SODIUM) (VALPROATE SODIUM) [Concomitant]
  4. RISPERDAL OD [Concomitant]
  5. BENECID (PROBENECID) (PROBENECID) [Concomitant]
  6. MECOBALAMIN (MECOBALAMIN) (MECOBALAMIN) [Concomitant]
  7. EBASTINE (EBASTINE) (EBASTINE) [Concomitant]
  8. MAGMITT (MAGNESIUM OXIDE) (MAGNESIUM OXIDE) [Concomitant]

REACTIONS (4)
  - Ileus [None]
  - Pneumonia [None]
  - Adhesion [None]
  - Cerebral atrophy [None]
